FAERS Safety Report 15594491 (Version 2)
Quarter: 2018Q4

REPORT INFORMATION
  Report Type: Spontaneous
  Country: FR (occurrence: FR)
  Receive Date: 20181107
  Receipt Date: 20181121
  Transmission Date: 20190205
  Serious: Yes (Life-Threatening, Hospitalization, Other)
  Sender: FDA-Public Use
  Company Number: FR-SHIRE-FR201842596

PATIENT

DRUGS (14)
  1. URSODEOXYCHOLIC ACID [Suspect]
     Active Substance: URSODIOL
     Indication: COLITIS
     Dosage: 1200 MG, 1X/DAY:QD
     Route: 048
     Dates: start: 2001
  2. CIPROFLOXACIN. [Suspect]
     Active Substance: CIPROFLOXACIN
     Indication: PRODUCT USED FOR UNKNOWN INDICATION
     Route: 065
  3. URSODEOXYCHOLIC ACID [Suspect]
     Active Substance: URSODIOL
     Indication: CHOLANGITIS SCLEROSING
  4. AZATHIOPRINE. [Suspect]
     Active Substance: AZATHIOPRINE
     Indication: COLITIS ULCERATIVE
  5. METRONIDAZOLE. [Suspect]
     Active Substance: METRONIDAZOLE
     Indication: PRODUCT USED FOR UNKNOWN INDICATION
     Route: 065
  6. 476 (MESALAZINE/MESALAMINE) [Suspect]
     Active Substance: MESALAMINE
     Indication: COLITIS
     Dosage: 2 G, 1X/DAY:QD
     Route: 048
     Dates: start: 2001
  7. AZATHIOPRINE. [Suspect]
     Active Substance: AZATHIOPRINE
     Indication: CHOLANGITIS SCLEROSING
     Dosage: 100 MG, 1X/DAY:QD
     Route: 065
     Dates: start: 2011
  8. INFLIXIMAB [Suspect]
     Active Substance: INFLIXIMAB
     Indication: CHOLANGITIS SCLEROSING
  9. ADALIMUMAB [Suspect]
     Active Substance: ADALIMUMAB
     Indication: CHOLANGITIS SCLEROSING
     Dosage: 40 MG, EVERY OTHER WEEK FOLLOWING AN INDUCTION REGIMEN
     Route: 065
     Dates: start: 2013
  10. 476 (MESALAZINE/MESALAMINE) [Suspect]
     Active Substance: MESALAMINE
     Indication: COLITIS ULCERATIVE
  11. INFLIXIMAB [Suspect]
     Active Substance: INFLIXIMAB
     Indication: COLITIS ULCERATIVE
     Dosage: 5 MG/KG, EVERY 8 WK
     Route: 065
     Dates: start: 2013
  12. ADALIMUMAB [Suspect]
     Active Substance: ADALIMUMAB
     Indication: COLITIS ULCERATIVE
  13. 476 (MESALAZINE/MESALAMINE) [Suspect]
     Active Substance: MESALAMINE
     Indication: CHOLANGITIS SCLEROSING
  14. URSODEOXYCHOLIC ACID [Suspect]
     Active Substance: URSODIOL
     Indication: COLITIS ULCERATIVE

REACTIONS (6)
  - Hepatic cirrhosis [Not Recovered/Not Resolved]
  - Drug ineffective [Recovered/Resolved]
  - Colitis ulcerative [Recovering/Resolving]
  - Off label use [Unknown]
  - Drug ineffective [Unknown]
  - Colitis [Recovered/Resolved]

NARRATIVE: CASE EVENT DATE: 2011
